FAERS Safety Report 18712037 (Version 2)
Quarter: 2022Q2

REPORT INFORMATION
  Report Type: Spontaneous
  Country: US (occurrence: US)
  Receive Date: 20210107
  Receipt Date: 20220426
  Transmission Date: 20220721
  Serious: No
  Sender: FDA-Public Use
  Company Number: US-PFIZER INC-2021005931

PATIENT
  Age: 78 Year
  Sex: Female

DRUGS (3)
  1. XELJANZ XR [Suspect]
     Active Substance: TOFACITINIB CITRATE
     Dosage: 11 MG
     Dates: start: 20201030
  2. XELJANZ XR [Suspect]
     Active Substance: TOFACITINIB CITRATE
     Dosage: 11 MG
     Dates: start: 20210311
  3. COVID-19 VACCINE [Concomitant]

REACTIONS (1)
  - Diarrhoea [Unknown]

NARRATIVE: CASE EVENT DATE: 20201225
